FAERS Safety Report 8120030-6 (Version None)
Quarter: 2011Q4

REPORT INFORMATION
  Report Type: 
  Country: None (occurrence: None)
  Receive Date: 20111227
  Receipt Date: 20111007
  Transmission Date: 20120403
  Serious: No
  Sender: FDA-Public Use
  Company Number: PHHY2011US43492

PATIENT
  Age: 45 Year
  Sex: Female

DRUGS (3)
  1. ADVAIR HFA [Concomitant]
  2. NAPROXEN [Concomitant]
  3. GILENYA [Suspect]
     Indication: RELAPSING-REMITTING MULTIPLE SCLEROSIS
     Dosage: 0.5 MG, QD, ORAL
     Route: 048
     Dates: start: 20110512

REACTIONS (3)
  - HEART RATE INCREASED [None]
  - PAIN [None]
  - PARAESTHESIA [None]
